FAERS Safety Report 25042546 (Version 1)
Quarter: 2025Q1

REPORT INFORMATION
  Report Type: Spontaneous
  Country: US (occurrence: None)
  Receive Date: 20250302
  Receipt Date: 20250302
  Transmission Date: 20250409
  Serious: Yes (Hospitalization, Disabling)
  Sender: FDA-CTU
  Company Number: None

PATIENT
  Age: 47 Year
  Sex: Female
  Weight: 90.9 kg

DRUGS (8)
  1. MACI [Suspect]
     Active Substance: AUTOLOGOUS CULTURED CHONDROCYTES\SUS SCROFA COLLAGEN
     Indication: Chondropathy
     Route: 050
     Dates: start: 20241122
  2. Crutches [Concomitant]
  3. Walker [Concomitant]
  4. DEVICE [Concomitant]
     Active Substance: DEVICE
  5. Shower Chair [Concomitant]
  6. Toilet Chair Lift [Concomitant]
  7. Ice Machine with Knee Attachment [Concomitant]
  8. ADVIL [Concomitant]
     Active Substance: IBUPROFEN

REACTIONS (3)
  - Pain [None]
  - Disability [None]
  - Implant tissue necrosis [None]

NARRATIVE: CASE EVENT DATE: 20241122
